FAERS Safety Report 25199134 (Version 2)
Quarter: 2025Q2

REPORT INFORMATION
  Report Type: Spontaneous
  Country: JP (occurrence: JP)
  Receive Date: 20250415
  Receipt Date: 20250428
  Transmission Date: 20250717
  Serious: Yes (Death)
  Sender: JOHNSON AND JOHNSON
  Company Number: JP-NShinyaku-EVA20250484901001307081

PATIENT
  Age: 77 Year
  Sex: Female

DRUGS (3)
  1. UPTRAVI [Suspect]
     Active Substance: SELEXIPAG
     Indication: Pulmonary arterial hypertension
     Route: 048
     Dates: start: 20230420
  2. OPSUMIT [Concomitant]
     Active Substance: MACITENTAN
     Indication: Pulmonary arterial hypertension
     Route: 048
  3. TADALAFIL:AD [Concomitant]
     Indication: Pulmonary arterial hypertension
     Route: 048

REACTIONS (3)
  - Right ventricular failure [Fatal]
  - Disease progression [Fatal]
  - Liver disorder [Unknown]

NARRATIVE: CASE EVENT DATE: 20250201
